FAERS Safety Report 9163987 (Version 4)
Quarter: 2013Q3

REPORT INFORMATION
  Report Type: Spontaneous
  Country: US (occurrence: US)
  Receive Date: 20130314
  Receipt Date: 20130910
  Transmission Date: 20140515
  Serious: Yes (Hospitalization, Disabling, Other)
  Sender: FDA-Public Use
  Company Number: US-OPTIMER-20130057

PATIENT
  Age: 57 Year
  Sex: Female
  Weight: 52.15 kg

DRUGS (2)
  1. DIFICID [Suspect]
     Indication: CLOSTRIDIUM DIFFICILE COLITIS
     Dosage: 200 MG, BID
     Route: 048
     Dates: start: 20130222, end: 20130303
  2. CLONAZEPAM [Concomitant]
     Indication: ANXIETY
     Dosage: 0.05 MG, QD
     Route: 048
     Dates: start: 2012

REACTIONS (23)
  - Suicidal ideation [Recovered/Resolved]
  - Clostridium difficile infection [Recovered/Resolved]
  - Neuropathy peripheral [Not Recovered/Not Resolved]
  - Liver injury [Not Recovered/Not Resolved]
  - General physical health deterioration [Not Recovered/Not Resolved]
  - Depression [Recovered/Resolved]
  - Pyrexia [Recovered/Resolved]
  - Night sweats [Recovered/Resolved]
  - Feeling hot [Recovered/Resolved]
  - Nightmare [Recovered/Resolved]
  - Insomnia [Recovered/Resolved]
  - Diarrhoea [Recovered/Resolved]
  - Weight decreased [Not Recovered/Not Resolved]
  - Oedema peripheral [Unknown]
  - Osteoporosis [Unknown]
  - Osteopenia [Unknown]
  - Constipation [Unknown]
  - Decreased appetite [Recovering/Resolving]
  - Nausea [Recovered/Resolved]
  - Flatulence [Not Recovered/Not Resolved]
  - Liver function test abnormal [Recovered/Resolved]
  - Blood bilirubin increased [Not Recovered/Not Resolved]
  - Drug ineffective [Unknown]
